FAERS Safety Report 14051903 (Version 8)
Quarter: 2018Q3

REPORT INFORMATION
  Report Type: Spontaneous
  Country: US (occurrence: US)
  Receive Date: 20171006
  Receipt Date: 20180924
  Transmission Date: 20181010
  Serious: No
  Sender: FDA-Public Use
  Company Number: US-PFIZER INC-2017388795

PATIENT
  Age: 50 Year
  Sex: Female
  Weight: 67 kg

DRUGS (5)
  1. IBRANCE [Suspect]
     Active Substance: PALBOCICLIB
     Dosage: 125 MG, CYCLIC (21 DAYS ON OFF A WEEK)
  2. IBRANCE [Suspect]
     Active Substance: PALBOCICLIB
     Indication: BREAST CANCER METASTATIC
     Dosage: 1 DF, CYCLIC (ONCE DAILY WITH FOOD 21 DAYS ON 7 DAYS OFF)
     Route: 048
  3. IBRANCE [Suspect]
     Active Substance: PALBOCICLIB
     Dosage: 125 MG, UNK
     Dates: start: 20170701
  4. IBRANCE [Suspect]
     Active Substance: PALBOCICLIB
     Dosage: 125 MG, CYCLIC (ONE TIME A DAY FOR 3 WEEKS)
     Route: 048
     Dates: start: 20170713, end: 2017
  5. IBRANCE [Suspect]
     Active Substance: PALBOCICLIB
     Dosage: 125 MG, CYCLIC (ONE CAPSULE BY MOUTH ONCE DAILY WITH FOOD 21 DAYS ON 7 DAYS OFF)
     Route: 048
     Dates: start: 2017

REACTIONS (20)
  - Fatigue [Unknown]
  - Anxiety [Not Recovered/Not Resolved]
  - Depression [Unknown]
  - Headache [Unknown]
  - Agitation [Unknown]
  - Diarrhoea [Unknown]
  - Pain in extremity [Unknown]
  - Gastric disorder [Unknown]
  - Constipation [Not Recovered/Not Resolved]
  - Condition aggravated [Not Recovered/Not Resolved]
  - White blood cell count decreased [Unknown]
  - Nausea [Unknown]
  - Musculoskeletal pain [Unknown]
  - Dyspnoea [Unknown]
  - Hypotension [Unknown]
  - Abdominal pain upper [Not Recovered/Not Resolved]
  - Panic attack [Unknown]
  - Malaise [Unknown]
  - Abdominal discomfort [Unknown]
  - Anger [Unknown]

NARRATIVE: CASE EVENT DATE: 20170921
